FAERS Safety Report 4420809-8 (Version None)
Quarter: 2004Q3

REPORT INFORMATION
  Report Type: 
  Country: None (occurrence: None)
  Receive Date: 20040809
  Receipt Date: 20040607
  Transmission Date: 20050211
  Serious: No
  Sender: FDA-Public Use
  Company Number: US-GLAXOSMITHKLINE-A0513600A

PATIENT
  Sex: Female

DRUGS (1)
  1. PAXIL [Suspect]
     Indication: POSTPARTUM DEPRESSION
     Route: 048
     Dates: start: 19970101

REACTIONS (6)
  - DRUG WITHDRAWAL SYNDROME [None]
  - FATIGUE [None]
  - MOOD SWINGS [None]
  - MYALGIA [None]
  - NEUROLOGICAL SYMPTOM [None]
  - SLEEP DISORDER [None]
